FAERS Safety Report 7234346-9 (Version None)
Quarter: 2011Q1

REPORT INFORMATION
  Report Type: 
  Country: None (occurrence: None)
  Receive Date: 20110119
  Receipt Date: 20110114
  Transmission Date: 20110831
  Serious: Yes (Hospitalization, Other)
  Sender: FDA-Public Use
  Company Number: US-ABBOTT-11P-163-0697869-00

PATIENT
  Sex: Female
  Weight: 100.79 kg

DRUGS (16)
  1. METHOTREXATE [Concomitant]
     Indication: PRODUCT USED FOR UNKNOWN INDICATION
  2. LYRICA [Concomitant]
     Indication: FIBROMYALGIA
  3. METOPROLOL [Concomitant]
     Indication: HYPERTENSION
  4. CARVEDILOL [Concomitant]
     Indication: HEART RATE IRREGULAR
  5. ASPIRIN [Concomitant]
  6. NAPROSYN [Concomitant]
     Indication: PAIN
  7. MICARDIS [Concomitant]
     Indication: HYPERTENSION
  8. CRESTOR [Concomitant]
     Indication: BLOOD CHOLESTEROL INCREASED
  9. CYMBALTA [Concomitant]
     Indication: DEPRESSION
  10. OMEPRAZOLE [Concomitant]
     Indication: GASTROINTESTINAL MUCOSAL DISORDER
  11. HUMIRA [Suspect]
     Indication: RHEUMATOID ARTHRITIS
     Dates: start: 20090101
  12. FOLIC ACID [Concomitant]
     Indication: ANAEMIA
  13. JANUVIA [Concomitant]
     Indication: PRODUCT USED FOR UNKNOWN INDICATION
  14. ASPIRIN [Concomitant]
     Indication: PRODUCT USED FOR UNKNOWN INDICATION
  15. METFORMIN HCL [Concomitant]
     Indication: GLUCOSE TOLERANCE IMPAIRED
  16. TOPAMAX [Concomitant]
     Indication: MIGRAINE

REACTIONS (8)
  - PYREXIA [None]
  - FATIGUE [None]
  - MOBILITY DECREASED [None]
  - ABASIA [None]
  - MALAISE [None]
  - HYPOTENSION [None]
  - KIDNEY INFECTION [None]
  - ANAEMIA [None]
